FAERS Safety Report 18884253 (Version 4)
Quarter: 2021Q3

REPORT INFORMATION
  Report Type: Spontaneous
  Country: US (occurrence: US)
  Receive Date: 20210211
  Receipt Date: 20210818
  Transmission Date: 20211014
  Serious: No
  Sender: FDA-Public Use
  Company Number: US-SA-2021SA043915

PATIENT
  Sex: Female

DRUGS (2)
  1. DUPIXENT [Suspect]
     Active Substance: DUPILUMAB
     Indication: ASTHMA
     Dosage: 2 DF, 1X (2 PEN)
     Route: 058
     Dates: start: 20210120, end: 20210120
  2. DUPIXENT [Suspect]
     Active Substance: DUPILUMAB
     Dosage: 300 MG, QOW (1 PEN)
     Route: 058
     Dates: start: 202101

REACTIONS (6)
  - Paraesthesia oral [Recovered/Resolved]
  - Injection site pain [Unknown]
  - Injection site urticaria [Unknown]
  - Erythema [Recovered/Resolved]
  - Peripheral swelling [Recovered/Resolved]
  - Injection site warmth [Recovered/Resolved]

NARRATIVE: CASE EVENT DATE: 2021
